FAERS Safety Report 25005150 (Version 2)
Quarter: 2025Q1

REPORT INFORMATION
  Report Type: Spontaneous
  Country: IE (occurrence: IE)
  Receive Date: 20250224
  Receipt Date: 20250305
  Transmission Date: 20250409
  Serious: Yes (Other)
  Sender: FERRING
  Company Number: None

PATIENT

DRUGS (2)
  1. DESMOPRESSIN [Suspect]
     Active Substance: DESMOPRESSIN
     Indication: Enuresis
     Dosage: 10 UG, 1 TIME DAILY (ONE SPRAY AT BEDTIME))
     Route: 045
     Dates: start: 20250117, end: 20250121
  2. DESMOPRESSIN [Suspect]
     Active Substance: DESMOPRESSIN
     Dosage: 10 UG, DAILY (ONE SPRAY DAILY, AT BEDTIME)
     Route: 045
     Dates: start: 2025, end: 2025

REACTIONS (3)
  - Hallucination, auditory [Recovered/Resolved]
  - Abdominal pain upper [Recovered/Resolved]
  - Epistaxis [Recovered/Resolved]

NARRATIVE: CASE EVENT DATE: 20250118
